FAERS Safety Report 10189066 (Version 2)
Quarter: 2014Q2

REPORT INFORMATION
  Report Type: Report from Study
  Country: DE (occurrence: TR)
  Receive Date: 20140522
  Receipt Date: 20140522
  Transmission Date: 20141212
  Serious: Yes (Other)
  Sender: FDA-Public Use
  Company Number: DE-ACTELION-A-US2014-94184

PATIENT
  Age: 67 Year
  Sex: Male

DRUGS (6)
  1. VENTAVIS [Suspect]
     Indication: PULMONARY HYPERTENSION
     Dosage: FREQUENCY 8X1
     Route: 055
     Dates: start: 20120210
  2. VENTAVIS [Suspect]
     Dosage: UNK, FREQUENCY 8X1
     Route: 055
  3. TRACLEER [Suspect]
     Indication: PULMONARY HYPERTENSION
     Dosage: 125 MG, BID
     Route: 048
     Dates: start: 2011
  4. TRACLEER [Suspect]
     Dosage: 125 MG, BID
     Route: 048
     Dates: start: 2011
  5. LASIX [Concomitant]
     Dosage: UNK
     Dates: start: 20140115
  6. ALDACTONE [Concomitant]
     Dosage: UNK
     Dates: start: 2012

REACTIONS (6)
  - Upper respiratory tract infection [Recovered/Resolved]
  - Pharyngitis [Recovered/Resolved]
  - Oedema peripheral [Recovered/Resolved]
  - Walking distance test abnormal [Recovered/Resolved]
  - Diarrhoea [Recovered/Resolved]
  - Haemorrhoidal haemorrhage [Recovered/Resolved]
